FAERS Safety Report 7912204-1 (Version None)
Quarter: 2011Q4

REPORT INFORMATION
  Report Type: 
  Country: None (occurrence: None)
  Receive Date: 20111114
  Receipt Date: 20111031
  Transmission Date: 20120403
  Serious: Yes (Hospitalization)
  Sender: FDA-Public Use
  Company Number: US-BAYER-201031820NA

PATIENT
  Age: 42 Year
  Sex: Female
  Weight: 66.667 kg

DRUGS (20)
  1. CLARINEX [Concomitant]
     Dosage: 5 MG, QD
     Route: 048
  2. MYROLOX [Concomitant]
     Dosage: UNK UNK, BID
     Route: 048
  3. WELLBUTRIN [Concomitant]
     Route: 048
  4. PHENERGAN [Concomitant]
  5. YASMIN [Suspect]
     Indication: CONTRACEPTION
     Dosage: UNK
     Route: 048
     Dates: start: 20010101, end: 20070101
  6. YASMIN [Suspect]
  7. PROMETHAZINE [Concomitant]
     Dosage: 25 MG, PRN
     Route: 048
     Dates: start: 20060221, end: 20060315
  8. ADVAIR DISKUS 100/50 [Concomitant]
     Dosage: 1 PUFF(S), BID
     Route: 055
  9. PERCOCET [Concomitant]
     Route: 048
  10. TRAMADOL HYDROCHLORIDE [Concomitant]
     Dosage: 50 MG, UNK
     Route: 048
  11. ALBUTEROL [Concomitant]
     Dosage: 2 PUFF(S), PRN
     Route: 055
  12. YASMIN [Suspect]
     Indication: PREMENSTRUAL SYNDROME
  13. HYDROMORPHONE HCL [Concomitant]
     Dosage: UNK
     Route: 048
     Dates: start: 20060201
  14. PROTONIX [Concomitant]
     Dosage: UNK UNK, BID
     Route: 048
  15. DARVOCET / PROPOXY [Concomitant]
     Indication: ANALGESIC THERAPY
     Dosage: UNK
     Route: 048
     Dates: start: 20060315, end: 20060330
  16. LEXAPRO [Concomitant]
     Route: 048
  17. OXYCODONE HCL [Concomitant]
     Indication: ANALGESIC THERAPY
     Dosage: UNK UNK, QD
     Dates: start: 20060301, end: 20061001
  18. IMITREX [Concomitant]
     Indication: HEADACHE
     Dosage: UNK UNK, PRN
     Route: 048
  19. NIRAVAM [Concomitant]
     Indication: ANXIETY
     Dosage: 0.5 MG, PRN
     Route: 048
  20. ACIPHEX [Concomitant]
     Route: 048

REACTIONS (17)
  - CHOLECYSTITIS CHRONIC [None]
  - CONSTIPATION [None]
  - FUNGAL INFECTION [None]
  - DIARRHOEA [None]
  - ANXIETY [None]
  - EMOTIONAL DISORDER [None]
  - CHOLECYSTECTOMY [None]
  - BILE DUCT STONE [None]
  - ABDOMINAL DISTENSION [None]
  - DYSPEPSIA [None]
  - HIATUS HERNIA [None]
  - SCAR [None]
  - BIPOLAR DISORDER [None]
  - FLATULENCE [None]
  - DEPRESSION [None]
  - ECONOMIC PROBLEM [None]
  - GASTRITIS [None]
